FAERS Safety Report 6506291 (Version 1)
Quarter: 2020Q3

REPORT INFORMATION
  Report Type: Spontaneous
  Country: US (occurrence: None)
  Receive Date: 20071206
  Receipt Date: 20071206
  Transmission Date: 20201104
  Serious: No
  Sender: FDA-Public Use
  Company Number: None

PATIENT

DRUGS (2)
  1. MIDAZOLAM HYDROCHLORIDE. [Suspect]
     Active Substance: MIDAZOLAM HYDROCHLORIDE
     Dosage: INJECTABLE
  2. EPHEDRINE. [Suspect]
     Active Substance: EPHEDRINE
     Dosage: INJECTABLE

REACTIONS (1)
  - Medication error [None]
